FAERS Safety Report 17804907 (Version 2)
Quarter: 2020Q2

REPORT INFORMATION
  Report Type: Spontaneous
  Country: FR (occurrence: FR)
  Receive Date: 20200519
  Receipt Date: 20200527
  Transmission Date: 20200714
  Serious: Yes (Death, Life-Threatening, Hospitalization)
  Sender: FDA-Public Use
  Company Number: FR-PFIZER INC-2020198946

PATIENT
  Age: 72 Year
  Sex: Male
  Weight: 65 kg

DRUGS (6)
  1. IBUPROFEN. [Suspect]
     Active Substance: IBUPROFEN
     Indication: PYREXIA
  2. IBUPROFEN. [Suspect]
     Active Substance: IBUPROFEN
     Indication: INFLUENZA LIKE ILLNESS
     Dosage: 1600 MG, 1X/DAY
     Route: 048
     Dates: start: 20200310, end: 20200312
  3. IBUPROFEN. [Suspect]
     Active Substance: IBUPROFEN
     Indication: DYSPNOEA
  4. IBUPROFEN. [Suspect]
     Active Substance: IBUPROFEN
     Indication: MYALGIA
  5. IBUPROFEN. [Suspect]
     Active Substance: IBUPROFEN
     Indication: COUGH
  6. PADERYL [CODEINE PHOSPHATE HEMIHYDRATE] [Concomitant]
     Active Substance: CODEINE PHOSPHATE
     Dosage: 19.5 MG

REACTIONS (8)
  - Condition aggravated [Fatal]
  - Acute respiratory distress syndrome [Fatal]
  - Multiple organ dysfunction syndrome [Fatal]
  - Respiratory tract infection bacterial [Fatal]
  - Treatment failure [Fatal]
  - Acute kidney injury [Fatal]
  - Severe acute respiratory syndrome [Fatal]
  - Hypoxia [Fatal]

NARRATIVE: CASE EVENT DATE: 202003
